FAERS Safety Report 9631737 (Version 3)
Quarter: 2013Q4

REPORT INFORMATION
  Report Type: Spontaneous
  Country: US (occurrence: US)
  Receive Date: 20131018
  Receipt Date: 20131226
  Transmission Date: 20140711
  Serious: Yes (Other)
  Sender: FDA-Public Use
  Company Number: US-BAYER-2013-126344

PATIENT
  Age: 35 Year
  Sex: Female
  Weight: 86.62 kg

DRUGS (8)
  1. MIRENA [Suspect]
     Indication: CONTRACEPTION
     Dosage: 20 MCG/24HR, CONT
     Route: 015
     Dates: start: 20110216, end: 20130214
  2. MIRENA [Suspect]
     Indication: CONTRACEPTION
     Dosage: 20 MCG/24HR, CONT
     Route: 015
     Dates: start: 20060308, end: 201006
  3. SYNTHROID [Concomitant]
     Indication: HYPOTHYROIDISM
     Dosage: 75 MCG, UNK
     Dates: start: 1999
  4. METFORMIN [Concomitant]
     Indication: DIABETES MELLITUS
     Dosage: 500 MG, UNK
     Dates: start: 2011, end: 2013
  5. LITHIUM [Concomitant]
     Indication: BIPOLAR I DISORDER
     Dosage: 300 MG, UNK
     Dates: start: 2011, end: 2013
  6. BUSPAR [Concomitant]
     Indication: BIPOLAR I DISORDER
     Dosage: UNK
     Dates: start: 2011, end: 2013
  7. CLONIDINE [Concomitant]
     Indication: BIPOLAR I DISORDER
     Dosage: UNK
     Dates: start: 2011, end: 2013
  8. GLYBURIDE [Concomitant]
     Indication: DIABETES MELLITUS
     Dosage: UNK
     Dates: start: 2011, end: 2013

REACTIONS (5)
  - Uterine perforation [None]
  - Injury [None]
  - Pain [None]
  - Emotional distress [None]
  - Device difficult to use [None]
